FAERS Safety Report 24609568 (Version 7)
Quarter: 2025Q1

REPORT INFORMATION
  Report Type: Report from Study
  Country: ES (occurrence: ES)
  Receive Date: 20241112
  Receipt Date: 20250225
  Transmission Date: 20250408
  Serious: Yes (Other)
  Sender: ABBVIE
  Company Number: ES-ABBVIE-5955355

PATIENT
  Age: 73 Year
  Sex: Male

DRUGS (3)
  1. CARBIDOPA\LEVODOPA [Suspect]
     Active Substance: CARBIDOPA\LEVODOPA
     Indication: Parkinson^s disease
     Route: 058
     Dates: start: 20240930
  2. DEXERIL [Concomitant]
     Indication: Product used for unknown indication
     Dates: start: 2024
  3. FURACIN [Concomitant]
     Active Substance: NITROFURAZONE
     Indication: Product used for unknown indication

REACTIONS (22)
  - Mydriasis [Recovered/Resolved]
  - Infusion site erythema [Unknown]
  - Catheter site erythema [Recovered/Resolved]
  - Catheter site related reaction [Recovered/Resolved]
  - Discomfort [Unknown]
  - On and off phenomenon [Recovered/Resolved]
  - Puncture site swelling [Recovered/Resolved]
  - Akinesia [Recovered/Resolved]
  - Therapeutic product effect incomplete [Recovered/Resolved]
  - Dry mouth [Recovered/Resolved]
  - Therapeutic product effect incomplete [Not Recovered/Not Resolved]
  - Puncture site reaction [Recovered/Resolved]
  - Puncture site induration [Recovered/Resolved]
  - Inflammation [Not Recovered/Not Resolved]
  - Puncture site inflammation [Recovered/Resolved]
  - Localised infection [Unknown]
  - Administration site nodule [Recovering/Resolving]
  - Infusion site mass [Unknown]
  - Puncture site pain [Recovering/Resolving]
  - Puncture site inflammation [Recovering/Resolving]
  - Puncture site erythema [Recovering/Resolving]
  - Administration site warmth [Recovering/Resolving]

NARRATIVE: CASE EVENT DATE: 20240101
